FAERS Safety Report 20552835 (Version 1)
Quarter: 2022Q1

REPORT INFORMATION
  Report Type: Spontaneous
  Country: US (occurrence: None)
  Receive Date: 20220304
  Receipt Date: 20220304
  Transmission Date: 20220423
  Serious: Yes (Death)
  Sender: FDA-Public Use
  Company Number: None

PATIENT
  Age: 77 Year
  Sex: Male

DRUGS (2)
  1. WARFARIN [Suspect]
     Active Substance: WARFARIN
     Indication: Atrial fibrillation
     Dates: start: 20080417
  2. WARFARIN [Suspect]
     Active Substance: WARFARIN
     Indication: Aortic valve replacement

REACTIONS (4)
  - Intra-abdominal haemorrhage [None]
  - Hypotension [None]
  - Haemoglobin decreased [None]
  - Heart rate decreased [None]

NARRATIVE: CASE EVENT DATE: 20220225
